FAERS Safety Report 10636321 (Version 2)
Quarter: 2015Q1

REPORT INFORMATION
  Report Type: Report from Study
  Country: CO (occurrence: CO)
  Receive Date: 20141206
  Receipt Date: 20150129
  Transmission Date: 20150720
  Serious: Yes (Death, Hospitalization, Other)
  Sender: FDA-Public Use
  Company Number: CO-ABBVIE-14K-036-1316437-00

PATIENT
  Age: 69 Year
  Sex: Male
  Weight: 60 kg

DRUGS (1)
  1. HUMIRA [Suspect]
     Active Substance: ADALIMUMAB
     Indication: CROHN^S DISEASE
     Route: 058
     Dates: start: 20130918, end: 20141119

REACTIONS (4)
  - Seizure [Unknown]
  - Coma [Recovered/Resolved]
  - Cardio-respiratory arrest [Fatal]
  - Crohn^s disease [Unknown]

NARRATIVE: CASE EVENT DATE: 201411
